FAERS Safety Report 5871477-X (Version None)
Quarter: 2008Q3

REPORT INFORMATION
  Report Type: 
  Country: None (occurrence: None)
  Receive Date: 20080905
  Receipt Date: 20080206
  Transmission Date: 20090109
  Serious: No
  Sender: FDA-Public Use
  Company Number: A0708775A

PATIENT
  Sex: Male

DRUGS (1)
  1. REQUIP [Suspect]
     Indication: DRUG USE FOR UNKNOWN INDICATION
     Route: 048

REACTIONS (3)
  - GAMBLING [None]
  - HEADACHE [None]
  - SEXUAL DYSFUNCTION [None]
